FAERS Safety Report 15643599 (Version 2)
Quarter: 2019Q2

REPORT INFORMATION
  Report Type: Report from Study
  Country: CA (occurrence: CA)
  Receive Date: 20181121
  Receipt Date: 20190426
  Transmission Date: 20190711
  Serious: Yes (Death, Hospitalization)
  Sender: FDA-Public Use
  Company Number: CA-PFIZER INC-2018475705

PATIENT
  Age: 78 Year
  Sex: Male

DRUGS (7)
  1. JAKAVI [Suspect]
     Active Substance: RUXOLITINIB
     Indication: MYELOFIBROSIS
     Dosage: 5 MG, 2X/DAY
     Route: 048
     Dates: start: 20150613
  2. EPREX [Concomitant]
     Active Substance: ERYTHROPOIETIN
     Dosage: 40 DF, UNK
  3. MORPHINE SULFATE. [Suspect]
     Active Substance: MORPHINE SULFATE
     Indication: BACK PAIN
  4. MORPHINE SULFATE. [Suspect]
     Active Substance: MORPHINE SULFATE
     Indication: ARTHRALGIA
  5. EPREX [Concomitant]
     Active Substance: ERYTHROPOIETIN
     Dosage: 60 DF, UNK
  6. MORPHINE SULFATE. [Suspect]
     Active Substance: MORPHINE SULFATE
     Indication: PAIN IN EXTREMITY
     Dosage: UNK [1 EVERY 4 HOUR(S)]
  7. MORPHINE SULFATE. [Suspect]
     Active Substance: MORPHINE SULFATE
     Indication: ABDOMINAL PAIN UPPER

REACTIONS (24)
  - Eating disorder [Recovering/Resolving]
  - Death [Fatal]
  - Dehydration [Unknown]
  - Dizziness [Unknown]
  - Night sweats [Not Recovered/Not Resolved]
  - Arthralgia [Unknown]
  - Drug ineffective [Unknown]
  - Loss of consciousness [Unknown]
  - Splenomegaly [Unknown]
  - Weight increased [Unknown]
  - Abdominal pain [Not Recovered/Not Resolved]
  - Abdominal pain upper [Not Recovered/Not Resolved]
  - Joint swelling [Unknown]
  - Muscle spasms [Unknown]
  - Pain [Unknown]
  - Asthenia [Unknown]
  - Back pain [Unknown]
  - Decreased appetite [Unknown]
  - Weight decreased [Unknown]
  - Concomitant disease aggravated [Unknown]
  - Anaemia [Unknown]
  - Skin discolouration [Unknown]
  - Vomiting [Unknown]
  - Pain in extremity [Unknown]

NARRATIVE: CASE EVENT DATE: 2016
